FAERS Safety Report 7772536-7 (Version None)
Quarter: 2011Q3

REPORT INFORMATION
  Report Type: 
  Country: None (occurrence: None)
  Receive Date: 20110922
  Receipt Date: 20101104
  Transmission Date: 20111222
  Serious: No
  Sender: FDA-Public Use
  Company Number: US-ASTRAZENECA-2010SE52769

PATIENT
  Sex: Male
  Weight: 90.7 kg

DRUGS (5)
  1. IMIPRAMINE HCL [Suspect]
     Dates: start: 20101001
  2. LISINOPRIL AND HYDROCHLOROTHIAZIDE [Concomitant]
     Indication: HYPERTENSION
     Dosage: 10/12.5
  3. ALPRAZOLAM [Concomitant]
  4. OXYCODONE HCL [Concomitant]
  5. SEROQUEL XR [Suspect]
     Indication: SLEEP DISORDER
     Route: 048
     Dates: start: 20080101, end: 20100901

REACTIONS (3)
  - DRUG DOSE OMISSION [None]
  - INSOMNIA [None]
  - DRUG INEFFECTIVE [None]
